FAERS Safety Report 24393179 (Version 1)
Quarter: 2024Q4

REPORT INFORMATION
  Report Type: Spontaneous
  Country: US (occurrence: None)
  Receive Date: 20241003
  Receipt Date: 20241003
  Transmission Date: 20250115
  Serious: No
  Sender: Public
  Company Number: None

PATIENT
  Age: 76 Year
  Sex: Female
  Weight: 61.2 kg

DRUGS (5)
  1. TIZANIDINE [Suspect]
     Active Substance: TIZANIDINE
     Indication: Myalgia
     Dosage: OTHER QUANTITY : 90 TABLET(S);?FREQUENCY : 3 TIMES A DAY;?
     Route: 048
     Dates: start: 20240820, end: 20241003
  2. ESTRADIOL [Concomitant]
  3. HYDROCHLOROTHIAZIDE\LOSARTAN [Concomitant]
     Active Substance: HYDROCHLOROTHIAZIDE\LOSARTAN
  4. SYNTHROID [Concomitant]
  5. MAGNESIUM [Concomitant]

REACTIONS (9)
  - Abdominal pain upper [None]
  - Nightmare [None]
  - Headache [None]
  - Nausea [None]
  - Weight decreased [None]
  - Anxiety [None]
  - Muscle tightness [None]
  - Dry mouth [None]
  - Pain [None]

NARRATIVE: CASE EVENT DATE: 20240915
